FAERS Safety Report 24357493 (Version 1)
Quarter: 2024Q3

REPORT INFORMATION
  Report Type: Spontaneous
  Country: US (occurrence: US)
  Receive Date: 20240924
  Receipt Date: 20240924
  Transmission Date: 20241017
  Serious: No
  Sender: TEVA
  Company Number: US-TEVA-VS-3244347

PATIENT
  Age: 45 Year

DRUGS (2)
  1. AJOVY [Suspect]
     Active Substance: FREMANEZUMAB-VFRM
     Indication: Product used for unknown indication
     Dosage: 225/1.5 MG/ML
     Route: 065
  2. AJOVY [Suspect]
     Active Substance: FREMANEZUMAB-VFRM

REACTIONS (7)
  - Injection site infection [Unknown]
  - Injection site warmth [Unknown]
  - Injection site swelling [Unknown]
  - Injection site induration [Unknown]
  - Injection site pruritus [Unknown]
  - Weight increased [Unknown]
  - Injection site erythema [Unknown]
